FAERS Safety Report 11942137 (Version 1)
Quarter: 2016Q1

REPORT INFORMATION
  Report Type: Spontaneous
  Country: HU (occurrence: HU)
  Receive Date: 20160125
  Receipt Date: 20160125
  Transmission Date: 20160526
  Serious: Yes (Hospitalization)
  Sender: FDA-Public Use
  Company Number: HU-ROCHE-1696942

PATIENT
  Age: 50 Year
  Sex: Female

DRUGS (2)
  1. TOCILIZUMAB [Suspect]
     Active Substance: TOCILIZUMAB
     Indication: RHEUMATOID ARTHRITIS
     Route: 042
     Dates: start: 201307
  2. MEDROL [Concomitant]
     Active Substance: METHYLPREDNISOLONE
     Indication: RHEUMATOID ARTHRITIS
     Route: 065
     Dates: start: 2002

REACTIONS (4)
  - Hypersensitivity vasculitis [Unknown]
  - Purpura fulminans [Recovering/Resolving]
  - Pneumonia [Recovering/Resolving]
  - Herpes zoster [Unknown]

NARRATIVE: CASE EVENT DATE: 2015
